FAERS Safety Report 6466905-5 (Version None)
Quarter: 2009Q4

REPORT INFORMATION
  Report Type: 
  Country: None (occurrence: None)
  Receive Date: 20091202
  Receipt Date: 20091121
  Transmission Date: 20100525
  Serious: Yes (Other)
  Sender: FDA-Public Use
  Company Number: US-PFIZER INC-2009301915

PATIENT
  Sex: Female
  Weight: 48.98 kg

DRUGS (1)
  1. LYRICA [Suspect]
     Indication: NERVE INJURY
     Dosage: 50 MG, 2X/DAY
     Route: 048

REACTIONS (2)
  - HEAD DISCOMFORT [None]
  - MUSCULAR WEAKNESS [None]
